FAERS Safety Report 6257934-5 (Version None)
Quarter: 2009Q3

REPORT INFORMATION
  Report Type: 
  Country: None (occurrence: None)
  Receive Date: 20090707
  Receipt Date: 20090701
  Transmission Date: 20100115
  Serious: Yes (Hospitalization)
  Sender: FDA-Public Use
  Company Number: CH-WYE-G03945509

PATIENT
  Age: 30 Year
  Sex: Female

DRUGS (1)
  1. EFFEXOR [Suspect]
     Dosage: UNKNOWN
     Dates: start: 20080101, end: 20090101

REACTIONS (3)
  - LABORATORY TEST ABNORMAL [None]
  - PAIN [None]
  - PANCREATITIS [None]
